FAERS Safety Report 16271023 (Version 2)
Quarter: 2019Q2

REPORT INFORMATION
  Report Type: Report from Study
  Country: KR (occurrence: KR)
  Receive Date: 20190503
  Receipt Date: 20190513
  Transmission Date: 20190711
  Serious: Yes (Hospitalization)
  Sender: FDA-Public Use
  Company Number: KR-PFIZER INC-2019185869

PATIENT
  Age: 76 Year
  Sex: Female

DRUGS (7)
  1. LEUCOVORINA [Suspect]
     Active Substance: LEUCOVORIN CALCIUM
     Indication: COLORECTAL CANCER METASTATIC
     Dosage: 155 MG, EVERY TWO WEEKS
     Route: 042
     Dates: start: 20170524
  2. BBI 608 [Suspect]
     Active Substance: NAPABUCASIN
     Indication: COLORECTAL CANCER METASTATIC
     Dosage: 240 MG, 2X/DAY
     Route: 048
     Dates: start: 20170522
  3. 5-FLUOROURACILO [Suspect]
     Active Substance: FLUOROURACIL
     Dosage: 310 MG, FORTNIGHTY, IV BOLUS
     Route: 040
     Dates: start: 20170607, end: 20170629
  4. IRINOTECAN HCL [Suspect]
     Active Substance: IRINOTECAN HYDROCHLORIDE
     Indication: COLORECTAL CANCER METASTATIC
     Dosage: 155 MG, EVERY 2 WEEKS
     Route: 042
     Dates: start: 20170424
  5. 5-FLUOROURACILO [Suspect]
     Active Substance: FLUOROURACIL
     Indication: COLORECTAL CANCER METASTATIC
     Dosage: 1150 MG, EVERY 2 WEEKS
     Route: 042
  6. BBI 608 [Suspect]
     Active Substance: NAPABUCASIN
     Dosage: 80 MG, 2X/DAY
     Route: 048
     Dates: start: 20170607
  7. 5-FLUOROURACILO [Suspect]
     Active Substance: FLUOROURACIL
     Dosage: 620 MG, FORTNIGHTY; IV BOLUS
     Route: 040
     Dates: start: 20170524

REACTIONS (1)
  - Orthostatic hypotension [Recovered/Resolved]

NARRATIVE: CASE EVENT DATE: 20180818
